FAERS Safety Report 5648497-3 (Version None)
Quarter: 2008Q1

REPORT INFORMATION
  Report Type: 
  Country: None (occurrence: None)
  Receive Date: 20080304
  Receipt Date: 20080227
  Transmission Date: 20080703
  Serious: Yes (Death, Other)
  Sender: FDA-Public Use
  Company Number: PHHY2008JP02278

PATIENT
  Age: 55 Year
  Sex: Male

DRUGS (3)
  1. CYCLOSPORINE [Suspect]
     Route: 048
  2. METHOTREXATE [Concomitant]
  3. METHYLPREDNISOLONE [Concomitant]
     Dosage: 2 MG/KG, UNK

REACTIONS (5)
  - CHOLECYSTITIS [None]
  - CYTOMEGALOVIRUS ENTEROCOLITIS [None]
  - HERPES ZOSTER [None]
  - LEUKAEMIA [None]
  - THROMBOTIC MICROANGIOPATHY [None]
